FAERS Safety Report 7019006-1 (Version None)
Quarter: 2010Q3

REPORT INFORMATION
  Report Type: 
  Country: None (occurrence: None)
  Receive Date: 20100928
  Receipt Date: 20100924
  Transmission Date: 20110219
  Serious: Yes (Hospitalization)
  Sender: FDA-Public Use
  Company Number: A0789845A

PATIENT
  Age: 56 Year
  Sex: Male
  Weight: 116.8 kg

DRUGS (7)
  1. AVANDIA [Suspect]
     Dosage: 4MG PER DAY
     Route: 048
     Dates: start: 20040114, end: 20050901
  2. ACCUPRIL [Concomitant]
  3. DILTIAZEM [Concomitant]
  4. FUROSEMIDE [Concomitant]
  5. AMARYL [Concomitant]
  6. CRESTOR [Concomitant]
  7. LANTUS [Concomitant]

REACTIONS (4)
  - CARDIAC FAILURE CONGESTIVE [None]
  - CEREBROVASCULAR ACCIDENT [None]
  - MYOCARDIAL INFARCTION [None]
  - MYOCARDIAL ISCHAEMIA [None]
